FAERS Safety Report 4976862-6 (Version None)
Quarter: 2006Q2

REPORT INFORMATION
  Report Type: 
  Country: None (occurrence: None)
  Receive Date: 20060419
  Receipt Date: 20060407
  Transmission Date: 20061013
  Serious: Yes (Hospitalization)
  Sender: FDA-Public Use
  Company Number: FR-AVENTIS-200611345FR

PATIENT
  Age: 81 Year
  Sex: Female
  Weight: 62 kg

DRUGS (9)
  1. LASILIX [Suspect]
     Indication: DRUG USE FOR UNKNOWN INDICATION
     Route: 048
     Dates: start: 20051225, end: 20051226
  2. LASILIX [Suspect]
     Route: 048
     Dates: start: 20051227, end: 20051228
  3. LASILIX [Suspect]
     Route: 048
     Dates: start: 20051229, end: 20060102
  4. TRIATEC [Suspect]
     Route: 048
     Dates: end: 20060102
  5. TRIATEC [Suspect]
     Route: 048
     Dates: start: 20060101
  6. PRAXILENE [Concomitant]
     Indication: DRUG USE FOR UNKNOWN INDICATION
  7. DAONIL [Concomitant]
     Indication: DRUG USE FOR UNKNOWN INDICATION
  8. LANTUS [Concomitant]
     Indication: DIABETES MELLITUS NON-INSULIN-DEPENDENT
  9. VASTAREL [Concomitant]
     Indication: DRUG USE FOR UNKNOWN INDICATION

REACTIONS (1)
  - RENAL FAILURE ACUTE [None]
